FAERS Safety Report 7069824-9 (Version None)
Quarter: 2010Q4

REPORT INFORMATION
  Report Type: 
  Country: None (occurrence: None)
  Receive Date: 20101028
  Receipt Date: 20100609
  Transmission Date: 20110411
  Serious: No
  Sender: FDA-Public Use
  Company Number: US-WYE-H15773810

PATIENT
  Age: 79 Year
  Sex: Male

DRUGS (2)
  1. ADVIL [Suspect]
     Indication: ARTHRALGIA
     Dosage: 1-2 TABLETS AS NEEDED
     Route: 048
  2. MULTI-VITAMINS [Concomitant]

REACTIONS (3)
  - PRURITUS [None]
  - SKIN IRRITATION [None]
  - URTICARIA [None]
